FAERS Safety Report 9049495 (Version 2)
Quarter: 2013Q1

REPORT INFORMATION
  Report Type: Spontaneous
  Country: ZA (occurrence: ZA)
  Receive Date: 20130205
  Receipt Date: 20130208
  Transmission Date: 20140127
  Serious: Yes (Life-Threatening, Other)
  Sender: FDA-Public Use
  Company Number: ZA-ASTRAZENECA-2013SE01388

PATIENT
  Age: 58 Year
  Sex: Female

DRUGS (12)
  1. SEROQUEL [Suspect]
     Indication: SEDATIVE THERAPY
     Route: 048
  2. SEROQUEL [Suspect]
     Indication: SEDATIVE THERAPY
     Dosage: 150 MG IN THE MORNING AT 05H30
     Route: 048
  3. SEROQUEL [Suspect]
     Indication: SEDATIVE THERAPY
     Dosage: 25 MG AT 09H00 AND 12H00
     Route: 048
  4. SEROQUEL [Suspect]
     Indication: SEDATIVE THERAPY
     Dosage: 200 MG AT 16H00
     Route: 048
  5. SEROQUEL [Suspect]
     Indication: SEDATIVE THERAPY
     Route: 048
     Dates: start: 201212
  6. SEROQUEL [Suspect]
     Indication: SEDATIVE THERAPY
     Route: 048
  7. SEROQUEL [Suspect]
     Indication: SEDATIVE THERAPY
     Dosage: 25 MG DAILY WHEN NECESSARY
     Route: 048
  8. SEROQUEL [Suspect]
     Indication: SEDATIVE THERAPY
     Route: 048
     Dates: start: 201212
  9. CIPRAMIL [Concomitant]
     Route: 048
     Dates: start: 201301
  10. NEXIAM [Concomitant]
     Indication: GASTROOESOPHAGEAL REFLUX DISEASE
     Route: 048
  11. ZYPREXA [Concomitant]
     Route: 048
  12. ZYPREXA [Concomitant]
     Route: 048

REACTIONS (6)
  - Overdose [Recovered/Resolved]
  - Suicide attempt [Recovered/Resolved]
  - Feeling abnormal [Recovering/Resolving]
  - Somnolence [Recovering/Resolving]
  - Off label use [Recovering/Resolving]
  - Intentional drug misuse [Unknown]
